FAERS Safety Report 18769120 (Version 2)
Quarter: 2021Q1

REPORT INFORMATION
  Report Type: Spontaneous
  Country: JP (occurrence: JP)
  Receive Date: 20210121
  Receipt Date: 20210127
  Transmission Date: 20210419
  Serious: Yes (Death)
  Sender: FDA-Public Use
  Company Number: JP-DSJP-DSJ-2020-137922

PATIENT
  Age: 91 Year
  Sex: Female
  Weight: 38 kg

DRUGS (4)
  1. EDIROL [Concomitant]
     Active Substance: ELDECALCITOL
     Dosage: UNK
     Route: 065
  2. OLMESARTAN                         /01635402/ [Concomitant]
     Active Substance: OLMESARTAN MEDOXOMIL
     Dosage: UNK
     Route: 048
  3. REMINYL [Concomitant]
     Active Substance: GALANTAMINE
     Dosage: UNK
     Route: 065
  4. LIXIANA OD TABLETS [Suspect]
     Active Substance: EDOXABAN TOSYLATE
     Indication: ATRIAL FIBRILLATION
     Dosage: 30 MG, QD
     Route: 048
     Dates: end: 20201215

REACTIONS (3)
  - Epistaxis [Not Recovered/Not Resolved]
  - Melaena [Not Recovered/Not Resolved]
  - Death [Fatal]

NARRATIVE: CASE EVENT DATE: 20201221
